FAERS Safety Report 6110409-6 (Version None)
Quarter: 2009Q1

REPORT INFORMATION
  Report Type: 
  Country: None (occurrence: None)
  Receive Date: 20090310
  Receipt Date: 20090217
  Transmission Date: 20090719
  Serious: Yes (Other)
  Sender: FDA-Public Use
  Company Number: US-PFIZER INC-2007042195

PATIENT
  Sex: Male
  Weight: 92.517 kg

DRUGS (5)
  1. VIAGRA [Suspect]
     Indication: ERECTILE DYSFUNCTION
     Route: 048
  2. VITAMINS [Concomitant]
  3. ALTACE [Concomitant]
  4. COREG [Concomitant]
     Indication: HYPERTENSION
  5. LATANOPROST [Concomitant]

REACTIONS (3)
  - GLAUCOMA [None]
  - HYPERTENSION [None]
  - MACULAR DEGENERATION [None]
